FAERS Safety Report 6296155-7 (Version None)
Quarter: 2009Q3

REPORT INFORMATION
  Report Type: 
  Country: None (occurrence: None)
  Receive Date: 20090804
  Receipt Date: 20090723
  Transmission Date: 20100115
  Serious: Yes (Death, Hospitalization, Other)
  Sender: FDA-Public Use
  Company Number: US-ROCHE-633130

PATIENT
  Sex: Male
  Weight: 98.9 kg

DRUGS (1)
  1. CAPECITABINE [Suspect]
     Indication: COLON CANCER
     Dosage: 1500 MG IN MORNING AND 1500 MG IN EVENING
     Route: 048
     Dates: start: 20090304, end: 20090504

REACTIONS (5)
  - CYSTITIS [None]
  - DEATH [None]
  - DEHYDRATION [None]
  - DIARRHOEA [None]
  - RENAL FAILURE [None]
